FAERS Safety Report 6072378-7 (Version None)
Quarter: 2009Q1

REPORT INFORMATION
  Report Type: 
  Country: None (occurrence: None)
  Receive Date: 20090210
  Receipt Date: 20090126
  Transmission Date: 20090719
  Serious: Yes (Other)
  Sender: FDA-Public Use
  Company Number: PHHY2009GB04637

PATIENT
  Sex: Male

DRUGS (1)
  1. ALISKIREN [Suspect]
     Dosage: UNK
     Dates: start: 20020101, end: 20020101

REACTIONS (9)
  - DISCOMFORT [None]
  - IMPAIRED HEALING [None]
  - MENTAL DISORDER [None]
  - PAIN OF SKIN [None]
  - PRURITUS [None]
  - PSORIASIS [None]
  - QUALITY OF LIFE DECREASED [None]
  - SKIN HAEMORRHAGE [None]
  - SKIN OPERATION [None]
